FAERS Safety Report 15797524 (Version 4)
Quarter: 2019Q2

REPORT INFORMATION
  Report Type: Report from Study
  Country: US (occurrence: US)
  Receive Date: 20190108
  Receipt Date: 20190514
  Transmission Date: 20190711
  Serious: Yes (Hospitalization, Other)
  Sender: FDA-Public Use
  Company Number: PHEH2019US000569

PATIENT
  Sex: Female

DRUGS (2)
  1. SYNTHROID [Concomitant]
     Active Substance: LEVOTHYROXINE SODIUM
     Indication: PRODUCT USED FOR UNKNOWN INDICATION
     Dosage: UNK
     Route: 065
  2. AFINITOR [Suspect]
     Active Substance: EVEROLIMUS
     Indication: CARCINOID TUMOUR
     Dosage: 10 MG, QD
     Route: 048
     Dates: start: 20181113

REACTIONS (13)
  - Angioedema [Not Recovered/Not Resolved]
  - Abdominal pain [Unknown]
  - Viral infection [Unknown]
  - Pollakiuria [Unknown]
  - Intestinal obstruction [Unknown]
  - Genital swelling [Unknown]
  - Headache [Unknown]
  - Infection [Unknown]
  - Dehydration [Unknown]
  - Abdominal distension [Not Recovered/Not Resolved]
  - Ascites [Unknown]
  - Urinary tract infection [Unknown]
  - Oedema peripheral [Unknown]
